FAERS Safety Report 7878865-0 (Version None)
Quarter: 2011Q4

REPORT INFORMATION
  Report Type: 
  Country: None (occurrence: None)
  Receive Date: 20111101
  Receipt Date: 20111021
  Transmission Date: 20120403
  Serious: Yes (Other)
  Sender: FDA-Public Use
  Company Number: US-JNJFOC-20111010535

PATIENT
  Sex: Male
  Weight: 158.31 kg

DRUGS (9)
  1. VITAMIN D [Concomitant]
  2. OMEPRAZOLE [Concomitant]
  3. RAMIPRIL [Concomitant]
  4. PATANOL [Concomitant]
     Route: 047
  5. IBUPROFEN [Concomitant]
  6. SINGULAIR [Concomitant]
  7. FUROSEMIDE [Concomitant]
  8. NASONEX [Concomitant]
  9. REMICADE [Suspect]
     Indication: PSORIASIS
     Dosage: FOR YEARS
     Route: 042

REACTIONS (3)
  - IMPAIRED HEALING [None]
  - VENOUS INSUFFICIENCY [None]
  - SKIN ULCER [None]
